FAERS Safety Report 7301359-8 (Version None)
Quarter: 2011Q1

REPORT INFORMATION
  Report Type: 
  Country: None (occurrence: None)
  Receive Date: 20110218
  Receipt Date: 20110128
  Transmission Date: 20110831
  Serious: No
  Sender: FDA-Public Use
  Company Number: US-B.I. PHARMACEUTICALS,INC./RIDGEFIELD-2010-BP-15094BP

PATIENT
  Sex: Female

DRUGS (10)
  1. FAMOTIDINE [Concomitant]
     Indication: ABDOMINAL DISCOMFORT
  2. GLYBERIDE [Concomitant]
     Indication: TYPE 2 DIABETES MELLITUS
  3. METOPROLOL [Concomitant]
     Indication: HYPERTENSION
  4. LASIX [Concomitant]
     Indication: FLUID RETENTION
  5. ALLOPURINOL [Concomitant]
     Indication: GOUT
  6. PRADAXA [Suspect]
     Indication: CARDIAC DISORDER
  7. AVAPRO [Concomitant]
     Indication: HYPERTENSION
  8. ZAROXOLYN [Concomitant]
     Indication: FLUID RETENTION
  9. PRADAXA [Suspect]
     Indication: ATRIAL FIBRILLATION
     Dosage: 300 MG
     Route: 048
     Dates: start: 20101206
  10. POTASSIUM [Concomitant]

REACTIONS (5)
  - BLOOD GLUCOSE [None]
  - ABDOMINAL DISCOMFORT [None]
  - FLATULENCE [None]
  - CONSTIPATION [None]
  - BLOOD GLUCOSE INCREASED [None]
